FAERS Safety Report 8093215-5 (Version None)
Quarter: 2012Q1

REPORT INFORMATION
  Report Type: 
  Country: None (occurrence: None)
  Receive Date: 20120128
  Receipt Date: 20111028
  Transmission Date: 20120608
  Serious: No
  Sender: FDA-Public Use
  Company Number: US-ABBOTT-11P-163-0702896-00

PATIENT
  Sex: Female
  Weight: 40.86 kg

DRUGS (6)
  1. ATROVENT [Concomitant]
     Indication: PRODUCT USED FOR UNKNOWN INDICATION
     Route: 055
  2. IRON [Concomitant]
     Indication: PRODUCT USED FOR UNKNOWN INDICATION
     Route: 048
  3. ALLEGRA [Concomitant]
     Indication: PRODUCT USED FOR UNKNOWN INDICATION
  4. PRILOSEC [Concomitant]
     Indication: PRODUCT USED FOR UNKNOWN INDICATION
  5. HUMIRA [Suspect]
     Indication: CROHN'S DISEASE
     Route: 058
     Dates: start: 20100301
  6. HUMIRA [Suspect]

REACTIONS (5)
  - HYPOAESTHESIA [None]
  - MUSCLE TIGHTNESS [None]
  - PARAESTHESIA [None]
  - PAIN [None]
  - GASTROINTESTINAL INFLAMMATION [None]
